FAERS Safety Report 20321386 (Version 1)
Quarter: 2022Q1

REPORT INFORMATION
  Report Type: Spontaneous
  Country: US (occurrence: None)
  Receive Date: 20220110
  Receipt Date: 20220110
  Transmission Date: 20220423
  Serious: Yes (Other)
  Sender: FDA-Public Use
  Company Number: None

PATIENT
  Age: 72 Year
  Sex: Female

DRUGS (1)
  1. H.P. ACTHAR [Suspect]
     Active Substance: CORTICOTROPIN
     Indication: Sarcoidosis
     Dosage: OTHER STRENGTH : 80 U/ML;?FREQUENCY : TWICE A DAY;?
     Route: 058
     Dates: start: 202109

REACTIONS (1)
  - Breast cancer [None]

NARRATIVE: CASE EVENT DATE: 20220110
